FAERS Safety Report 5401704-4 (Version None)
Quarter: 2007Q3

REPORT INFORMATION
  Report Type: 
  Country: None (occurrence: None)
  Receive Date: 20070731
  Receipt Date: 20070719
  Transmission Date: 20080115
  Serious: Yes (Disabling, Other)
  Sender: FDA-Public Use
  Company Number: BR-PFIZER INC-2007060604

PATIENT
  Sex: Male

DRUGS (1)
  1. DIABINESE [Suspect]
     Route: 048

REACTIONS (3)
  - BLINDNESS UNILATERAL [None]
  - TOE AMPUTATION [None]
  - VISUAL ACUITY REDUCED [None]
